FAERS Safety Report 8275206 (Version 3)
Quarter: 2013Q4

REPORT INFORMATION
  Report Type: Spontaneous
  Country: US (occurrence: US)
  Receive Date: 20111205
  Receipt Date: 20131230
  Transmission Date: 20140711
  Serious: Yes (Death, Hospitalization)
  Sender: FDA-Public Use
  Company Number: US-GLAXOSMITHKLINE-A0903076A

PATIENT
  Age: 64 Year
  Sex: Male
  Weight: 125.5 kg

DRUGS (10)
  1. AVANDIA [Suspect]
     Indication: DIABETES MELLITUS
     Dosage: 4MG TWICE PER DAY
     Route: 048
     Dates: start: 200007, end: 20090720
  2. INSULIN [Concomitant]
  3. COREG [Concomitant]
  4. ZOCOR [Concomitant]
  5. ALTACE [Concomitant]
  6. AVAPRO [Concomitant]
  7. NORVASC [Concomitant]
  8. PRILOSEC [Concomitant]
  9. PROMETHAZINE [Concomitant]
  10. ULTRACET [Concomitant]

REACTIONS (3)
  - Myocardial infarction [Unknown]
  - Coronary artery disease [Unknown]
  - Death [Fatal]
